FAERS Safety Report 8764402 (Version 1)
Quarter: 2012Q4

REPORT INFORMATION
  Report Type: 
  Country: US (occurrence: US)
  Receive Date: 20120831
  Receipt Date: 20120831
  Transmission Date: 20130627
  Serious: Yes (Other)
  Sender: FDA-Public Use
  Company Number: PHEH2012US016870

PATIENT
  Sex: Female

DRUGS (5)
  1. DIOVAN [Suspect]
     Dosage: 320 mg, UNK
  2. CLOPIDOGREL [Concomitant]
  3. OMEPRAZOLE [Concomitant]
     Dosage: 20 mg, UNK
  4. AMLODIPINE [Concomitant]
  5. PLAVIX [Concomitant]
     Dosage: 75 mg, UNK

REACTIONS (1)
  - Cerebrovascular accident [Unknown]
